FAERS Safety Report 18059300 (Version 1)
Quarter: 2020Q3

REPORT INFORMATION
  Report Type: Spontaneous
  Country: US (occurrence: US)
  Receive Date: 20200723
  Receipt Date: 20200723
  Transmission Date: 20201103
  Serious: Yes (Death)
  Sender: FDA-Public Use
  Company Number: None

PATIENT
  Age: 82 Year
  Sex: Female
  Weight: 47.9 kg

DRUGS (17)
  1. FUROSEMIDE. [Concomitant]
     Active Substance: FUROSEMIDE
  2. MORPHINE [Concomitant]
     Active Substance: MORPHINE
  3. ENOXAPARIN [Concomitant]
     Active Substance: ENOXAPARIN
  4. METOPROLOL. [Concomitant]
     Active Substance: METOPROLOL
  5. REMDESIVIR. [Suspect]
     Active Substance: REMDESIVIR
     Indication: COVID-19 PNEUMONIA
     Dosage: ?          OTHER FREQUENCY:ONCE;?
     Route: 042
     Dates: start: 20200717, end: 20200718
  6. AZITHROMYCIN ANHYDROUS. [Concomitant]
     Active Substance: AZITHROMYCIN ANHYDROUS
  7. DEXAMETHASONE. [Concomitant]
     Active Substance: DEXAMETHASONE
  8. ISOSORBIDE. [Concomitant]
     Active Substance: ISOSORBIDE
  9. ASPIRIN. [Concomitant]
     Active Substance: ASPIRIN
  10. DONEPIZIL [Concomitant]
  11. CEFTRIAXONE. [Concomitant]
     Active Substance: CEFTRIAXONE
  12. CLOPIDOGREL [Concomitant]
     Active Substance: CLOPIDOGREL BISULFATE
  13. LORAZEPAM. [Concomitant]
     Active Substance: LORAZEPAM
  14. HALOPERIDOL. [Concomitant]
     Active Substance: HALOPERIDOL
  15. ATORVASTATIN [Concomitant]
     Active Substance: ATORVASTATIN
  16. QUETIAPINE. [Concomitant]
     Active Substance: QUETIAPINE
  17. ONDANSETRON [Concomitant]
     Active Substance: ONDANSETRON

REACTIONS (3)
  - Oxygen saturation decreased [None]
  - SARS-CoV-2 test positive [None]
  - Hypoxia [None]

NARRATIVE: CASE EVENT DATE: 20200719
